FAERS Safety Report 10905882 (Version 2)
Quarter: 2015Q1

REPORT INFORMATION
  Report Type: Spontaneous
  Country: CA (occurrence: None)
  Receive Date: 20150226
  Receipt Date: 20150319
  Transmission Date: 20150721
  Serious: Yes (Other)
  Sender: FDA-Public Use
  Company Number: LIT-021-15-CA

PATIENT
  Age: 34 Year
  Sex: Female

DRUGS (3)
  1. PRIVIGEN [Suspect]
     Active Substance: HUMAN IMMUNOGLOBULIN G
     Indication: DERMATOMYOSITIS
     Dosage: INTRAVENOUS (NOT OTHERWISE SPECIFIED)?
     Route: 042
  2. HYDROXYCHLOROQUIN [Concomitant]
  3. PREDNISONE. [Concomitant]
     Active Substance: PREDNISONE

REACTIONS (6)
  - Condition aggravated [None]
  - Dermatomyositis [None]
  - Muscular weakness [None]
  - Placental insufficiency [None]
  - Maternal exposure during pregnancy [None]
  - Caesarean section [None]
